FAERS Safety Report 7506846-5 (Version None)
Quarter: 2011Q2

REPORT INFORMATION
  Report Type: 
  Country: None (occurrence: None)
  Receive Date: 20110526
  Receipt Date: 20110516
  Transmission Date: 20111010
  Serious: Yes (Disabling)
  Sender: FDA-Public Use
  Company Number: B0719173A

PATIENT
  Age: 26 Year
  Sex: Male

DRUGS (2)
  1. ZOVIRAX [Suspect]
     Route: 048
     Dates: start: 20090501, end: 20101101
  2. ALLOPURINOL [Concomitant]

REACTIONS (1)
  - TENDONITIS [None]
